FAERS Safety Report 10516153 (Version 3)
Quarter: 2014Q4

REPORT INFORMATION
  Report Type: Spontaneous
  Country: FR (occurrence: FR)
  Receive Date: 20141014
  Receipt Date: 20141114
  Transmission Date: 20150528
  Serious: Yes (Other)
  Sender: FDA-Public Use
  Company Number: FR-TEVA-488694ISR

PATIENT
  Age: 40 Year
  Sex: Female

DRUGS (6)
  1. AMLOR 5MG [Concomitant]
     Indication: MYOCARDIAL INFARCTION
     Route: 048
     Dates: start: 201012
  2. KARDEGIC 75MG [Concomitant]
     Indication: MYOCARDIAL INFARCTION
     Route: 048
     Dates: start: 201012
  3. LEVOTHYROX 75MG [Concomitant]
     Dosage: LONG-TERM TREATMENT
     Route: 048
  4. COPAXONE [Suspect]
     Active Substance: GLATIRAMER ACETATE
     Indication: MULTIPLE SCLEROSIS
     Dosage: TREATMENT WAS STOPPED DURING ONE WEEK
     Route: 058
     Dates: start: 20130624
  5. COPAXONE [Suspect]
     Active Substance: GLATIRAMER ACETATE
     Route: 058
     Dates: start: 201409, end: 20141004
  6. COPAXONE [Suspect]
     Active Substance: GLATIRAMER ACETATE
     Route: 058
     Dates: start: 20140713, end: 20140830

REACTIONS (12)
  - Secondary progressive multiple sclerosis [Unknown]
  - Injection site nodule [Recovered/Resolved]
  - Muscle spasms [Unknown]
  - Fatigue [Unknown]
  - Gait disturbance [Unknown]
  - Drug dose omission [Unknown]
  - Dysarthria [Unknown]
  - Exercise tolerance decreased [Unknown]
  - Therapeutic product ineffective [Unknown]
  - Multiple sclerosis [Unknown]
  - Injection site induration [Recovered/Resolved]
  - Inappropriate schedule of drug administration [Unknown]

NARRATIVE: CASE EVENT DATE: 201407
